FAERS Safety Report 9678181 (Version 1)
Quarter: 2013Q4

REPORT INFORMATION
  Report Type: Spontaneous
  Country: RU (occurrence: RU)
  Receive Date: 20131108
  Receipt Date: 20131108
  Transmission Date: 20140711
  Serious: Yes (Hospitalization)
  Sender: FDA-Public Use
  Company Number: PHHY2013RU126984

PATIENT
  Age: 40 Year
  Sex: Male

DRUGS (5)
  1. TACROLIMUS [Suspect]
  2. PREDNISOLONE [Concomitant]
  3. FELODIPINE [Concomitant]
  4. OMEPRAZOLE [Concomitant]
  5. LOSARTAN [Concomitant]

REACTIONS (4)
  - Dysgeusia [Recovering/Resolving]
  - Diarrhoea [Recovering/Resolving]
  - Nausea [Recovering/Resolving]
  - Abdominal pain upper [Recovering/Resolving]
